FAERS Safety Report 7134087-2 (Version None)
Quarter: 2010Q4

REPORT INFORMATION
  Report Type: 
  Country: None (occurrence: None)
  Receive Date: 20101117
  Receipt Date: 20101101
  Transmission Date: 20110411
  Serious: Yes (Other)
  Sender: FDA-Public Use
  Company Number: 2010004766

PATIENT
  Age: 29 Year
  Sex: Male

DRUGS (2)
  1. TARCEVA [Suspect]
     Indication: LUNG NEOPLASM MALIGNANT
     Dosage: 150 MG QD, ORAL
     Route: 048
     Dates: start: 20100801
  2. MORPHINE [Concomitant]

REACTIONS (1)
  - VISUAL ACUITY REDUCED [None]
